FAERS Safety Report 18427529 (Version 3)
Quarter: 2021Q1

REPORT INFORMATION
  Report Type: Spontaneous
  Country: JP (occurrence: JP)
  Receive Date: 20201026
  Receipt Date: 20210208
  Transmission Date: 20210419
  Serious: Yes (Hospitalization, Other)
  Sender: FDA-Public Use
  Company Number: JP-PFIZER INC-2020409611

PATIENT
  Age: 72 Year
  Sex: Female
  Weight: 56.9 kg

DRUGS (2)
  1. XELJANZ [Suspect]
     Active Substance: TOFACITINIB CITRATE
     Dosage: 5 MG, 1X/DAY
     Dates: start: 20200114
  2. XELJANZ [Suspect]
     Active Substance: TOFACITINIB CITRATE
     Dosage: 5 MG, 2X/DAY
     Dates: start: 20200115

REACTIONS (3)
  - Guillain-Barre syndrome [Recovered/Resolved]
  - Diabetes mellitus inadequate control [Unknown]
  - Back disorder [Unknown]

NARRATIVE: CASE EVENT DATE: 20200508
